FAERS Safety Report 7951708-2 (Version None)
Quarter: 2011Q4

REPORT INFORMATION
  Report Type: 
  Country: None (occurrence: None)
  Receive Date: 20111201
  Receipt Date: 20111125
  Transmission Date: 20120403
  Serious: Yes (Other)
  Sender: FDA-Public Use
  Company Number: JP-JNJFOC-20111111695

PATIENT

DRUGS (3)
  1. FENTANYL-100 [Suspect]
     Route: 062
  2. MORPHINE HYDROCHLORIDE [Suspect]
     Indication: CANCER PAIN
  3. FENTANYL-100 [Suspect]
     Indication: CANCER PAIN
     Route: 062

REACTIONS (4)
  - SOMNOLENCE [None]
  - OXYGEN SATURATION DECREASED [None]
  - CONSTIPATION [None]
  - DECREASED APPETITE [None]
